FAERS Safety Report 5101490-1 (Version None)
Quarter: 2006Q3

REPORT INFORMATION
  Report Type: 
  Country: None (occurrence: None)
  Receive Date: 20060906
  Receipt Date: 20060822
  Transmission Date: 20061208
  Serious: Yes (Other)
  Sender: FDA-Public Use
  Company Number: 2006103900

PATIENT
  Sex: Female

DRUGS (12)
  1. LYRICA [Suspect]
     Indication: DRUG USE FOR UNKNOWN INDICATION
     Dosage: 150 MG (75 MG, 2 IN 1 D), ORAL
     Route: 048
     Dates: start: 20051102, end: 20051120
  2. ANASTROZOLE [Concomitant]
  3. BACLOFEN [Concomitant]
  4. CALCICHEW (CALCIUM CARBONATE) [Concomitant]
  5. CITALOPRAM [Concomitant]
  6. DIPYRIDAMOLE [Concomitant]
  7. FLUTICASONE PROPIONATE [Concomitant]
  8. FOSAMAX [Concomitant]
  9. FUROSEMIDE [Concomitant]
  10. PERINDOPRIL ERBUMINE [Concomitant]
  11. ALBUTEROL SPIROS [Concomitant]
  12. SIMVASTATIN [Concomitant]

REACTIONS (3)
  - CONFUSIONAL STATE [None]
  - NEUTROPENIA [None]
  - SOMNOLENCE [None]
